FAERS Safety Report 9207184 (Version 1)
Quarter: 2013Q1

REPORT INFORMATION
  Report Type: Spontaneous
  Country: US (occurrence: None)
  Receive Date: 20120718
  Receipt Date: 20120718
  Transmission Date: 20140127
  Serious: Yes (Hospitalization, Other)
  Sender: FDA-Public Use
  Company Number: 163-50794-12051246

PATIENT
  Age: 64 Year
  Sex: Male

DRUGS (9)
  1. VIDAZA [Suspect]
     Indication: MYELODYSPLASTIC SYNDROME
     Dosage: X 3 DAYS
     Route: 058
  2. HYDROCODONE BITARTRATE/ACETAMINOPHEN (VICODIN) UNKNOWN [Concomitant]
  3. ALLOPURINOL (ALLOPURINOL) UNKNOWN [Concomitant]
  4. COLCHICINE (COLCHICINE)UNKNOWN [Concomitant]
  5. DOXAZOSIN (DOXAZOSIN) UNKNOWN [Concomitant]
  6. TIOTROPIUM (TIOTROPIUM) UNKNOWN [Concomitant]
  7. BUDESONIDE (BUDESONIDE ) UNKNOWN [Concomitant]
  8. FORMOTEROL FUMARATE DIHYDRATE (FORMOTEROL FUMARATE) UNKNOWN [Concomitant]
  9. CETIRIZINE HYDROCHLORIDE (CETERIZINE HYDROCHLORIDE ) UNKNOWN [Concomitant]

REACTIONS (6)
  - Acute febrile neutrophilic dermatosis [None]
  - Rash erythematous [None]
  - Skin lesion [None]
  - Flushing [None]
  - Pyrexia [None]
  - General physical health deterioration [None]
